FAERS Safety Report 4393116-X (Version None)
Quarter: 2004Q3

REPORT INFORMATION
  Report Type: 
  Country: None (occurrence: None)
  Receive Date: 20040706
  Receipt Date: 20040628
  Transmission Date: 20050211
  Serious: Yes (Hospitalization)
  Sender: FDA-Public Use
  Company Number: 200412000EU

PATIENT
  Age: 47 Year
  Sex: Female
  Weight: 57.4 kg

DRUGS (1)
  1. RILUZOLE [Suspect]
     Indication: HUNTINGTON'S CHOREA
     Route: 048
     Dates: start: 20000711

REACTIONS (5)
  - CORNEAL ULCER [None]
  - DEHYDRATION [None]
  - GASTROENTERITIS [None]
  - STAPHYLOCOCCAL INFECTION [None]
  - VIRAL INFECTION [None]
